FAERS Safety Report 24602621 (Version 1)
Quarter: 2024Q4

REPORT INFORMATION
  Report Type: Spontaneous
  Country: US (occurrence: US)
  Receive Date: 20241111
  Receipt Date: 20241111
  Transmission Date: 20250114
  Serious: Yes (Death)
  Sender: GLAXOSMITHKLINE
  Company Number: US-GSK-US2024138916

PATIENT

DRUGS (1)
  1. TRELEGY ELLIPTA [Suspect]
     Active Substance: FLUTICASONE FUROATE\UMECLIDINIUM BROMIDE\VILANTEROL TRIFENATATE
     Indication: Chronic obstructive pulmonary disease
     Dosage: UNK (TRELEGY ELLIPTA 100/62.5/25MCG INH 30)
     Dates: start: 20240607, end: 20240806

REACTIONS (1)
  - Chronic obstructive pulmonary disease [Fatal]
